FAERS Safety Report 10227505 (Version 1)
Quarter: 2014Q2

REPORT INFORMATION
  Report Type: Spontaneous
  Country: US (occurrence: US)
  Receive Date: 20140610
  Receipt Date: 20140610
  Transmission Date: 20141212
  Serious: No
  Sender: FDA-Public Use
  Company Number: US-VIIV HEALTHCARE LIMITED-A1067074A

PATIENT
  Age: 54 Year
  Sex: Male
  Weight: 104.5 kg

DRUGS (9)
  1. TIVICAY [Suspect]
     Indication: HIV INFECTION
     Dosage: 50MG PER DAY
     Route: 048
     Dates: start: 201403, end: 20140314
  2. DARUNAVIR [Concomitant]
  3. RITONAVIR [Concomitant]
  4. EPIVIR [Concomitant]
  5. VIREAD [Concomitant]
  6. PRAVASTATIN [Concomitant]
  7. DEPO-TESTOSTERONE [Concomitant]
  8. ALPRAZOLAM [Concomitant]
  9. NEXIUM [Concomitant]

REACTIONS (2)
  - Headache [Recovered/Resolved]
  - Diplopia [Recovered/Resolved]
